FAERS Safety Report 7833090-4 (Version None)
Quarter: 2011Q4

REPORT INFORMATION
  Report Type: 
  Country: None (occurrence: None)
  Receive Date: 20111024
  Receipt Date: 20111013
  Transmission Date: 20120403
  Serious: Yes (Other)
  Sender: FDA-Public Use
  Company Number: US-US-EMD SERONO, INC.-7060955

PATIENT
  Sex: Female
  Weight: 68 kg

DRUGS (3)
  1. REBIF [Suspect]
     Route: 058
     Dates: start: 20110908
  2. REBIF [Suspect]
     Indication: MULTIPLE SCLEROSIS
     Route: 058
     Dates: start: 20100528, end: 20110103
  3. PERCOGESIC [Concomitant]
     Indication: PREMEDICATION

REACTIONS (10)
  - RHEUMATOID ARTHRITIS [None]
  - PARAESTHESIA [None]
  - MUSCLE SPASMS [None]
  - IMPAIRED HEALING [None]
  - POST PROCEDURAL COMPLICATION [None]
  - TRIGEMINAL NEURALGIA [None]
  - FATIGUE [None]
  - INFLUENZA LIKE ILLNESS [None]
  - BLOOD GLUCOSE INCREASED [None]
  - ARTHRALGIA [None]
